FAERS Safety Report 20370429 (Version 6)
Quarter: 2022Q4

REPORT INFORMATION
  Report Type: Report from Study
  Country: JP (occurrence: JP)
  Receive Date: 20220124
  Receipt Date: 20221228
  Transmission Date: 20230113
  Serious: Yes (Other)
  Sender: FDA-Public Use
  Company Number: JP-ONO-2021JP023617

PATIENT
  Age: 70 Year
  Sex: Female
  Weight: 68.85 kg

DRUGS (21)
  1. BRAFTOVI [Suspect]
     Active Substance: ENCORAFENIB
     Indication: Colon cancer
     Dosage: 300 MG
     Route: 048
     Dates: start: 20210921, end: 20220106
  2. ANAMORELIN HYDROCHLORIDE [Suspect]
     Active Substance: ANAMORELIN HYDROCHLORIDE
     Indication: Cachexia
     Dosage: 100 MG, EVERYDAY
     Route: 048
     Dates: start: 20210527, end: 20220108
  3. FOSAPREPITANT [Suspect]
     Active Substance: FOSAPREPITANT
     Indication: Prophylaxis of nausea and vomiting
     Dosage: 150 MG
     Route: 041
     Dates: end: 20210819
  4. DECADRON [Suspect]
     Active Substance: DEXAMETHASONE
     Dosage: 8 MG, EVERYDAY
     Route: 065
     Dates: end: 20210821
  5. DEXAMETHASONE SODIUM PHOSPHATE [Suspect]
     Active Substance: DEXAMETHASONE SODIUM PHOSPHATE
     Dosage: 9.9 MG, EVERYDAY
     Route: 065
     Dates: end: 20210819
  6. AVASTIN [Concomitant]
     Active Substance: BEVACIZUMAB
     Indication: Colon cancer
     Dosage: 260 MG
     Route: 065
     Dates: end: 20210819
  7. IRINOTECAN HYDROCHLORIDE [Concomitant]
     Active Substance: IRINOTECAN HYDROCHLORIDE
     Indication: Colon cancer
     Dosage: 220 MG
     Route: 065
     Dates: end: 20210819
  8. OXALIPLATIN [Concomitant]
     Active Substance: OXALIPLATIN
     Indication: Colon cancer
     Dosage: 110 MG
     Route: 065
     Dates: end: 20210819
  9. ISOVORIN [Concomitant]
     Active Substance: LEUCOVORIN CALCIUM
     Indication: Colon cancer
     Dosage: 260 MG
     Route: 065
     Dates: end: 20210819
  10. FLUOROURACIL [Concomitant]
     Active Substance: FLUOROURACIL
     Indication: Colon cancer
     Dosage: 4200 MG
     Route: 065
     Dates: end: 20210819
  11. GRANISETRON [Concomitant]
     Active Substance: GRANISETRON
     Dosage: 1 MG, EVERYDAY
     Route: 065
     Dates: end: 20210819
  12. NEXIUM [Concomitant]
     Active Substance: ESOMEPRAZOLE MAGNESIUM
     Indication: Prophylaxis
     Dosage: 20 MG, EVERYDAY
     Route: 065
     Dates: end: 20220108
  13. LOXOPROFEN [Concomitant]
     Active Substance: LOXOPROFEN
     Dosage: 60 MG, EVERYDAY
     Route: 065
     Dates: end: 20220108
  14. POTASSIUM ASPARTATE [Concomitant]
     Active Substance: POTASSIUM ASPARTATE
     Dosage: 1800 MG, EVERYDAY
     Route: 065
     Dates: end: 20220108
  15. MAGNESIUM OXIDE [Concomitant]
     Active Substance: MAGNESIUM OXIDE
     Dosage: 1000 MG, EVERYDAY
     Route: 065
     Dates: start: 20210907, end: 20220108
  16. ZINC [Concomitant]
     Active Substance: ZINC
     Dosage: 50 MG, EVERYDAY
     Route: 065
     Dates: start: 20210820, end: 20220108
  17. PRIMPERAN [Concomitant]
     Active Substance: METOCLOPRAMIDE HYDROCHLORIDE
     Dosage: UNK
     Route: 065
  18. BELSOMRA [Concomitant]
     Active Substance: SUVOREXANT
     Dosage: 15 MG, EVERYDAY
     Route: 065
     Dates: start: 20210924, end: 20220108
  19. CARBOHYDRATES\FATTY ACIDS\MINERALS\PROTEIN\VITAMINS [Concomitant]
     Active Substance: CARBOHYDRATES\FATTY ACIDS\MINERALS\PROTEIN\VITAMINS
     Dosage: UNK
     Route: 065
  20. ERBITUX [Concomitant]
     Active Substance: CETUXIMAB
     Indication: Colon cancer
     Dosage: 400 MG
     Route: 065
     Dates: start: 20210910, end: 20211224
  21. POLARAMINE [Concomitant]
     Active Substance: DEXCHLORPHENIRAMINE MALEATE
     Dosage: 5 MG, EVERYDAY
     Route: 042
     Dates: start: 20210910, end: 20211224

REACTIONS (2)
  - Uveitis [Recovering/Resolving]
  - Type 2 diabetes mellitus [Recovering/Resolving]

NARRATIVE: CASE EVENT DATE: 20210630
